FAERS Safety Report 12612774 (Version 1)
Quarter: 2016Q3

REPORT INFORMATION
  Report Type: Spontaneous
  Country: BR (occurrence: BR)
  Receive Date: 20160801
  Receipt Date: 20160801
  Transmission Date: 20161109
  Serious: Yes (Hospitalization, Other)
  Sender: FDA-Public Use
  Company Number: BR-ELI_LILLY_AND_COMPANY-BR201607004862

PATIENT
  Sex: Female
  Weight: 48 kg

DRUGS (2)
  1. HUMULIN N [Suspect]
     Active Substance: INSULIN HUMAN
     Indication: DIABETES MELLITUS
     Dosage: 20 IU, EACH MORNING
     Route: 058
     Dates: start: 2013, end: 201409
  2. HUMULIN N [Suspect]
     Active Substance: INSULIN HUMAN
     Dosage: UNK UNK, EACH EVENING
     Route: 058
     Dates: start: 2013, end: 201409

REACTIONS (6)
  - Pre-eclampsia [Unknown]
  - Amniotic fluid index decreased [Unknown]
  - Diabetic metabolic decompensation [Unknown]
  - Maternal exposure during pregnancy [Recovered/Resolved]
  - Amniorrhoea [Unknown]
  - Placental disorder [Unknown]
